FAERS Safety Report 5981480-7 (Version None)
Quarter: 2008Q4

REPORT INFORMATION
  Report Type: 
  Country: None (occurrence: None)
  Receive Date: 20081205
  Receipt Date: 20081202
  Transmission Date: 20090506
  Serious: Yes (Life-Threatening, Hospitalization, Other)
  Sender: FDA-Public Use
  Company Number: US-ELI_LILLY_AND_COMPANY-US200812001044

PATIENT
  Sex: Male

DRUGS (11)
  1. HUMULIN N [Suspect]
     Dosage: 16 U, EACH MORNING
  2. HUMULIN N [Suspect]
     Dosage: 16 U, EACH EVENING
  3. HUMULIN R [Suspect]
  4. HUMULIN N [Suspect]
     Dosage: UNK, UNK
     Dates: start: 19910101
  5. METFORMIN HCL [Concomitant]
     Indication: DIABETES MELLITUS
  6. ALLOPURINOL [Concomitant]
     Indication: GOUT
  7. COLCHICINE [Concomitant]
     Indication: GOUT
  8. LANTUS [Concomitant]
     Dosage: UNK, UNK
     Dates: start: 20080101
  9. COUMADIN [Concomitant]
  10. NOVOLOG [Concomitant]
     Dosage: 7 U, UNK
  11. NOVOLOG [Concomitant]
     Dosage: 12 U, UNK

REACTIONS (7)
  - ATRIAL FIBRILLATION [None]
  - BLOOD GLUCOSE INCREASED [None]
  - CARDIAC FAILURE CONGESTIVE [None]
  - INTRACARDIAC THROMBUS [None]
  - METABOLIC DISORDER [None]
  - MYOCARDIAL INFARCTION [None]
  - RENAL IMPAIRMENT [None]
